FAERS Safety Report 15403306 (Version 1)
Quarter: 2018Q3

REPORT INFORMATION
  Report Type: Report from Study
  Country: IL (occurrence: IL)
  Receive Date: 20180919
  Receipt Date: 20180919
  Transmission Date: 20181010
  Serious: Yes (Other)
  Sender: FDA-Public Use
  Company Number: IL-SA-2017SA267427

PATIENT
  Age: 60 Year
  Sex: Female

DRUGS (4)
  1. TOUJEO [Suspect]
     Active Substance: INSULIN GLARGINE
     Dosage: 54 DF,QD
     Route: 058
     Dates: start: 201704
  2. NOVORAPID [Suspect]
     Active Substance: INSULIN ASPART
     Dosage: UNK UNK,UNK
     Route: 065
  3. LIXISENATIDE [Suspect]
     Active Substance: LIXISENATIDE
     Dosage: UNK
     Route: 065
  4. LANTUS [Concomitant]
     Active Substance: INSULIN GLARGINE
     Dosage: UNK UNK,UNK
     Route: 065
     Dates: end: 201704

REACTIONS (13)
  - Syncope [Recovering/Resolving]
  - Asthenia [Not Recovered/Not Resolved]
  - Injection site mass [Not Recovered/Not Resolved]
  - Constipation [Not Recovered/Not Resolved]
  - Fatigue [Not Recovered/Not Resolved]
  - Tremor [Recovering/Resolving]
  - Headache [Not Recovered/Not Resolved]
  - Hypoglycaemia [Recovering/Resolving]
  - Loss of consciousness [Not Recovered/Not Resolved]
  - Blood glucose abnormal [Not Recovered/Not Resolved]
  - Diarrhoea [Recovering/Resolving]
  - Dry mouth [Not Recovered/Not Resolved]
  - Blood glucose increased [Not Recovered/Not Resolved]

NARRATIVE: CASE EVENT DATE: 2017
